FAERS Safety Report 11239419 (Version 1)
Quarter: 2015Q3

REPORT INFORMATION
  Report Type: Spontaneous
  Country: FI (occurrence: FI)
  Receive Date: 20150706
  Receipt Date: 20150706
  Transmission Date: 20151125
  Serious: Yes (Hospitalization)
  Sender: FDA-Public Use
  Company Number: FI-ACTAVIS-2015-13196

PATIENT
  Age: 46 Year
  Sex: Female

DRUGS (2)
  1. NATRIUMKLORID BAXTER [Concomitant]
     Indication: PRODUCT USED FOR UNKNOWN INDICATION
     Dosage: UNK
     Route: 042
     Dates: start: 20150416, end: 20150416
  2. DOCETAXEL ACTAVIS [Suspect]
     Active Substance: DOCETAXEL
     Indication: PRODUCT USED FOR UNKNOWN INDICATION
     Dosage: 130 MG, DAILY
     Route: 042
     Dates: start: 20150416, end: 20150416

REACTIONS (8)
  - Abdominal pain lower [Recovering/Resolving]
  - Dyspnoea [Recovering/Resolving]
  - Back pain [Recovering/Resolving]
  - Cough [Recovering/Resolving]
  - Respiratory distress [Recovering/Resolving]
  - Hypersensitivity [Recovering/Resolving]
  - Dizziness [Recovering/Resolving]
  - Erythema [Recovering/Resolving]

NARRATIVE: CASE EVENT DATE: 20150416
